FAERS Safety Report 10695685 (Version 1)
Quarter: 2015Q1

REPORT INFORMATION
  Report Type: Spontaneous
  Country: BE (occurrence: None)
  Receive Date: 20150105
  Receipt Date: 20150105
  Transmission Date: 20150721
  Serious: Yes (Congenital Anomaly)
  Sender: FDA-Public Use
  Company Number: 2014/097

PATIENT
  Sex: Female
  Weight: 3.75 kg

DRUGS (1)
  1. VALPROIC ACID. [Suspect]
     Active Substance: VALPROIC ACID

REACTIONS (16)
  - Hypertonic bladder [None]
  - Craniosynostosis [None]
  - Balance disorder [None]
  - Maternal drugs affecting foetus [None]
  - Congenital foot malformation [None]
  - Dysmorphism [None]
  - Hypertelorism of orbit [None]
  - Congenital nose malformation [None]
  - Speech disorder developmental [None]
  - Deafness unilateral [None]
  - Sensory loss [None]
  - Ear malformation [None]
  - Congenital joint malformation [None]
  - Atrial septal defect [None]
  - Motor developmental delay [None]
  - Conductive deafness [None]
